FAERS Safety Report 13779045 (Version 2)
Quarter: 2019Q1

REPORT INFORMATION
  Report Type: Spontaneous
  Country: FR (occurrence: FR)
  Receive Date: 20170721
  Receipt Date: 20190119
  Transmission Date: 20190417
  Serious: Yes (Death, Hospitalization)
  Sender: FDA-Public Use
  Company Number: FR-AUROBINDO-AUR-APL-2015-01074

PATIENT
  Age: 77 Year
  Sex: Female

DRUGS (4)
  1. PARACETAMOL [Suspect]
     Active Substance: ACETAMINOPHEN
     Indication: BACK PAIN
     Dosage: 6.6 GRAM, DAILY
     Route: 065
  2. PARACETAMOL [Suspect]
     Active Substance: ACETAMINOPHEN
     Dosage: 6.6 MILLIGRAM, ONCE A DAY (6.5999999 MILLIGRAM)
     Route: 065
  3. DICLOFENAC/MISOPROSTOL [Concomitant]
     Active Substance: DICLOFENAC SODIUM\MISOPROSTOL
     Indication: BACK PAIN
     Dosage: 50/0.2 MG DAILY
     Route: 065
  4. TRAMADOL. [Concomitant]
     Active Substance: TRAMADOL
     Indication: BACK PAIN
     Dosage: 225 MILLIGRAM, DAILY
     Route: 065

REACTIONS (16)
  - Blood creatine increased [Unknown]
  - Hepatitis fulminant [Fatal]
  - Hepatic encephalopathy [Unknown]
  - Acute hepatic failure [Unknown]
  - Haemoglobin decreased [Unknown]
  - Autoimmune hepatitis [Fatal]
  - Overdose [Fatal]
  - Gastrointestinal haemorrhage [Unknown]
  - Acute kidney injury [Fatal]
  - Hypovolaemic shock [Unknown]
  - Pyrexia [Unknown]
  - Anaemia [Unknown]
  - Hepatitis E [Fatal]
  - Jaundice [Unknown]
  - Alanine aminotransferase increased [Unknown]
  - Somnolence [Unknown]
